FAERS Safety Report 5088341-9 (Version None)
Quarter: 2006Q3

REPORT INFORMATION
  Report Type: 
  Country: None (occurrence: None)
  Receive Date: 20060821
  Receipt Date: 20060803
  Transmission Date: 20061208
  Serious: Yes (Death, Life-Threatening, Hospitalization)
  Sender: FDA-Public Use
  Company Number: F03200600177

PATIENT
  Age: 51 Year
  Sex: Male

DRUGS (4)
  1. OXALIPLATIN - SOLUTION [Suspect]
     Indication: LEUKAEMIA
     Dosage: INTRAVENOUS NOS
     Route: 042
     Dates: start: 20060101, end: 20060101
  2. FLUDARABINE SOLUTION [Suspect]
     Indication: LEUKAEMIA
     Dosage: INTRAVENOUS NOS
     Route: 042
     Dates: start: 20060101, end: 20060101
  3. RITUXIMAB SOLUTION [Suspect]
     Indication: LEUKAEMIA
     Dosage: INTRAVENOUS NOS
     Route: 042
     Dates: start: 20060101, end: 20060101
  4. CYTARABINE SOLUTION [Suspect]
     Indication: LEUKAEMIA
     Dosage: INTRAVENOUS NOS
     Route: 042
     Dates: start: 20060101, end: 20060101

REACTIONS (2)
  - DISEASE PROGRESSION [None]
  - HEPATIC FAILURE [None]
